FAERS Safety Report 8501854-X (Version None)
Quarter: 2012Q3

REPORT INFORMATION
  Report Type: 
  Country: None (occurrence: None)
  Receive Date: 20120711
  Receipt Date: 20120705
  Transmission Date: 20120928
  Serious: Yes (Hospitalization, Other)
  Sender: FDA-Public Use
  Company Number: PHHY2011BR11818

PATIENT
  Sex: Female
  Weight: 65 kg

DRUGS (12)
  1. LIPOSIC [Concomitant]
     Indication: GLAUCOMA
     Dosage: UNK UKN, UNK
     Route: 047
  2. METFORMIN HYDROCHLORIDE [Concomitant]
     Indication: DIABETES MELLITUS
     Dosage: 1 DF, BID (1 TABLET 2 TIMES DAILY AFTER THE LUNCH AND DINNER)
     Route: 048
  3. LIPOSIC [Concomitant]
     Indication: CATARACT
  4. OLCADIL [Suspect]
     Dosage: 2 MG, DAILY
     Route: 048
  5. AMLODIPINE BESYLATE [Concomitant]
     Indication: HYPERTENSION
     Dosage: 5 MG,  1 TABLET AFTER LUNCH AND 1 TABLET AT NIGHT
     Route: 048
     Dates: start: 20120609
  6. OMEPRAZOLE [Concomitant]
     Indication: GASTRIC DISORDER
     Dosage: 20 MG,  1 TABLET AT FASTING
     Route: 048
     Dates: start: 20120609
  7. HYDERGINE [Concomitant]
     Dosage: 1 DF, QD
     Dates: start: 20120609
  8. OLCADIL [Suspect]
     Dosage: 2 DF, (1 TABLET AFTER LUNCH AND 1 TABLET AT NIGHT)
     Route: 048
     Dates: start: 20120609
  9. ENALAPRIL MALEATE [Concomitant]
     Indication: HYPERTENSION
     Dosage: 20 MG, 1 TABLET AFTER LUNCH AND 1 TABLET AT NIGHT
     Route: 048
     Dates: start: 20120609
  10. ASPIRIN [Concomitant]
     Dosage: 1 DF,A DAY
     Route: 048
     Dates: start: 20120609
  11. DIOVAN [Suspect]
     Indication: HYPERTENSION
     Dosage: 1 DF, ONE TABLET IN THE MORNING AND ONE TABLET AT NIGHT
     Route: 048
     Dates: start: 20050101
  12. SIMVASTATIN [Concomitant]
     Indication: BLOOD CHOLESTEROL
     Dosage: 20 MG, 1 TABLET A DAY
     Route: 048
     Dates: start: 20120609

REACTIONS (12)
  - TRANSIENT ISCHAEMIC ATTACK [None]
  - CEREBROVASCULAR ACCIDENT [None]
  - INTRAOCULAR PRESSURE INCREASED [None]
  - HYPERSENSITIVITY [None]
  - BLOOD PRESSURE INCREASED [None]
  - CORNEAL DISORDER [None]
  - DIZZINESS [None]
  - DRUG INEFFECTIVE [None]
  - PHOTOPHOBIA [None]
  - FLUID RETENTION [None]
  - EYE DISORDER [None]
  - EYE IRRITATION [None]
